FAERS Safety Report 9993957 (Version 1)
Quarter: 2014Q1

REPORT INFORMATION
  Report Type: Spontaneous
  Country: US (occurrence: US)
  Receive Date: 20140310
  Receipt Date: 20140310
  Transmission Date: 20141002
  Serious: No
  Sender: FDA-Public Use
  Company Number: US-AMGEN-USASP2013079522

PATIENT
  Sex: Male

DRUGS (2)
  1. SENSIPAR [Suspect]
     Indication: BLOOD POTASSIUM ABNORMAL
     Dosage: 30 MG, UNK
     Route: 065
  2. SENSIPAR [Suspect]
     Indication: HYPERCALCAEMIA

REACTIONS (4)
  - Pain [Unknown]
  - Pruritus [Unknown]
  - Diarrhoea [Unknown]
  - Nausea [Unknown]
